FAERS Safety Report 7861307-9 (Version None)
Quarter: 2011Q4

REPORT INFORMATION
  Report Type: 
  Country: None (occurrence: None)
  Receive Date: 20111027
  Receipt Date: 20111018
  Transmission Date: 20120403
  Serious: No
  Sender: FDA-Public Use
  Company Number: US-JNJFOC-20111004319

PATIENT
  Sex: Male
  Weight: 80.2 kg

DRUGS (5)
  1. REMICADE [Suspect]
     Indication: INFLAMMATORY BOWEL DISEASE
     Route: 042
     Dates: start: 20100310
  2. REMICADE [Suspect]
     Route: 042
     Dates: start: 20110527
  3. ACETAMINOPHEN [Concomitant]
     Indication: PREMEDICATION
  4. TPN [Concomitant]
  5. ANTIHISTAMINES [Concomitant]
     Indication: PREMEDICATION

REACTIONS (1)
  - PSORIASIS [None]
